FAERS Safety Report 17442769 (Version 3)
Quarter: 2020Q2

REPORT INFORMATION
  Report Type: Spontaneous
  Country: US (occurrence: US)
  Receive Date: 20200220
  Receipt Date: 20200402
  Transmission Date: 20200713
  Serious: No
  Sender: FDA-Public Use
  Company Number: US-CELLTRION INC.-2020US019556

PATIENT

DRUGS (5)
  1. TRULICITY [Concomitant]
     Active Substance: DULAGLUTIDE
     Indication: DIABETES MELLITUS
     Dosage: ONE SHOT EVERY FRIDAY
  2. INFLECTRA [Suspect]
     Active Substance: INFLIXIMAB-DYYB
     Indication: ARTHRITIS
     Dosage: LAST DOSES WERE RECEIVED IN DEC OR JAN; GETTING INFUSIONS FOR OVER A YEAR OR TWO YEARS NOW; DOSE MIG
  3. PRESERVISION AREDS [Concomitant]
     Active Substance: MINERALS\VITAMINS
     Indication: MACULAR DEGENERATION
     Dosage: UNK
  4. PLAQUENIL [Concomitant]
     Active Substance: HYDROXYCHLOROQUINE SULFATE
     Dosage: ONCE A DAY BY MOUTH
     Route: 048
  5. INFLECTRA [Suspect]
     Active Substance: INFLIXIMAB-DYYB
     Indication: RHEUMATOID ARTHRITIS
     Dosage: 600 MG EVERY 6 WEEKS
     Dates: start: 2019

REACTIONS (4)
  - Condition aggravated [Unknown]
  - Product dose omission [Unknown]
  - Pain [Unknown]
  - Overdose [Unknown]
